FAERS Safety Report 16759600 (Version 3)
Quarter: 2019Q4

REPORT INFORMATION
  Report Type: Spontaneous
  Country: US (occurrence: US)
  Receive Date: 20190830
  Receipt Date: 20191205
  Transmission Date: 20200122
  Serious: Yes (Other)
  Sender: FDA-Public Use
  Company Number: US-JNJFOC-20190835574

PATIENT
  Age: 67 Year
  Sex: Male

DRUGS (1)
  1. ZYTIGA [Suspect]
     Active Substance: ABIRATERONE ACETATE
     Indication: PRODUCT USED FOR UNKNOWN INDICATION
     Route: 048
     Dates: end: 20191114

REACTIONS (4)
  - Nausea [Unknown]
  - Chemotherapy [Unknown]
  - Vomiting [Recovered/Resolved]
  - Inadequate diet [Unknown]

NARRATIVE: CASE EVENT DATE: 20190716
